FAERS Safety Report 10235231 (Version 1)
Quarter: 2014Q2

REPORT INFORMATION
  Report Type: Spontaneous
  Country: JP (occurrence: JP)
  Receive Date: 20140613
  Receipt Date: 20140613
  Transmission Date: 20141212
  Serious: Yes (Other)
  Sender: FDA-Public Use
  Company Number: JP-UCBSA-2014000552

PATIENT
  Sex: 0

DRUGS (1)
  1. CIMZIA [Suspect]
     Dosage: 200MG SYRINGE
     Route: 058

REACTIONS (1)
  - Fracture [Unknown]
